FAERS Safety Report 5581789-5 (Version None)
Quarter: 2008Q1

REPORT INFORMATION
  Report Type: 
  Country: None (occurrence: None)
  Receive Date: 20080104
  Receipt Date: 20071220
  Transmission Date: 20080703
  Serious: Yes (Other)
  Sender: FDA-Public Use
  Company Number: DE-AMGEN-UK258242

PATIENT
  Sex: Male

DRUGS (3)
  1. ARANESP [Suspect]
     Indication: DRUG USE FOR UNKNOWN INDICATION
     Dates: start: 20040101, end: 20071001
  2. SIMVASTATIN [Concomitant]
     Dates: start: 19970101
  3. EPOETIN BETA [Concomitant]
     Route: 065
     Dates: start: 20071030

REACTIONS (2)
  - ANAEMIA [None]
  - APLASIA PURE RED CELL [None]
